FAERS Safety Report 7269777-4 (Version None)
Quarter: 2011Q1

REPORT INFORMATION
  Report Type: 
  Country: None (occurrence: None)
  Receive Date: 20110124
  Receipt Date: 20110113
  Transmission Date: 20110831
  Serious: Yes (Hospitalization, Other)
  Sender: FDA-Public Use
  Company Number: 2007-03402

PATIENT
  Age: 62 Year
  Sex: Male
  Weight: 65 kg

DRUGS (2)
  1. VELCADE [Suspect]
     Indication: MULTIPLE MYELOMA
     Dosage: 0.70 MG/M2, INTRAVENOUS
     Route: 042
     Dates: start: 20070521, end: 20070917
  2. ALKERAN [Suspect]
     Indication: MULTIPLE MYELOMA
     Dosage: 8.00 MG, ORAL
     Route: 048
     Dates: start: 20070521, end: 20070913

REACTIONS (9)
  - RALES [None]
  - INFECTION [None]
  - THROMBOCYTOPENIA [None]
  - FALL [None]
  - ANAEMIA [None]
  - COUGH [None]
  - BRONCHITIS [None]
  - NEUTROPENIA [None]
  - DISORIENTATION [None]
